FAERS Safety Report 8915735 (Version 1)
Quarter: 2012Q4

REPORT INFORMATION
  Report Type: 
  Country: CA (occurrence: CA)
  Receive Date: 20121119
  Receipt Date: 20121119
  Transmission Date: 20130627
  Serious: Yes (Death)
  Sender: FDA-Public Use
  Company Number: CA-BAXTER-2012BAX023679

PATIENT
  Sex: Male

DRUGS (2)
  1. DIANEAL PD4 SOLUTION WITH 2.5% DEXTROSE AND 2.5 MEQ/L CALCIUM [Suspect]
     Indication: AUTOMATED PERITONEAL DIALYSIS
     Route: 033
     Dates: end: 20121109
  2. EXTRANEAL [Suspect]
     Indication: AUTOMATED PERITONEAL DIALYSIS
     Route: 033
     Dates: end: 20121109

REACTIONS (1)
  - Death [Fatal]
